FAERS Safety Report 8552678-9 (Version None)
Quarter: 2012Q3

REPORT INFORMATION
  Report Type: 
  Country: None (occurrence: None)
  Receive Date: 20120731
  Receipt Date: 20120724
  Transmission Date: 20120928
  Serious: No
  Sender: FDA-Public Use
  Company Number: US-PFIZER INC-2012179332

PATIENT
  Sex: Female
  Weight: 48.073 kg

DRUGS (1)
  1. PREMARIN [Suspect]
     Indication: INCONTINENCE
     Dosage: UNK, 1X/DAY
     Route: 067
     Dates: start: 20120722

REACTIONS (7)
  - DYSPHONIA [None]
  - OFF LABEL USE [None]
  - ORAL DISCOMFORT [None]
  - TONGUE DISORDER [None]
  - DRY THROAT [None]
  - DRY MOUTH [None]
  - INSOMNIA [None]
